FAERS Safety Report 9220979 (Version 6)
Quarter: 2013Q3

REPORT INFORMATION
  Report Type: Report from Study
  Country: CA (occurrence: CA)
  Receive Date: 20130409
  Receipt Date: 20130802
  Transmission Date: 20140515
  Serious: Yes (Hospitalization)
  Sender: FDA-Public Use
  Company Number: CA-ABBOTT-13P-028-1074148-00

PATIENT
  Age: 40 Year
  Sex: Male
  Weight: 60.38 kg

DRUGS (5)
  1. HUMIRA [Suspect]
     Indication: CROHN^S DISEASE
     Route: 058
     Dates: start: 20120618
  2. HUMIRA [Suspect]
  3. PREDNISONE [Suspect]
     Indication: CROHN^S DISEASE
     Route: 048
     Dates: start: 1984, end: 201304
  4. CIPRO [Concomitant]
     Indication: INTESTINAL OBSTRUCTION
     Route: 042
     Dates: start: 20130401, end: 201304
  5. FLAGYL [Concomitant]
     Indication: INTESTINAL OBSTRUCTION
     Route: 042
     Dates: start: 201304, end: 201304

REACTIONS (14)
  - Intestinal obstruction [Unknown]
  - Intestinal obstruction [Not Recovered/Not Resolved]
  - White blood cell count abnormal [Not Recovered/Not Resolved]
  - White blood cell count increased [Not Recovered/Not Resolved]
  - Pain [Unknown]
  - Vomiting [Unknown]
  - Malaise [Unknown]
  - Vomiting [Recovered/Resolved]
  - Crohn^s disease [Not Recovered/Not Resolved]
  - Inflammation [Not Recovered/Not Resolved]
  - Weight decreased [Not Recovered/Not Resolved]
  - Drug ineffective [Unknown]
  - Rash [Not Recovered/Not Resolved]
  - Arthralgia [Not Recovered/Not Resolved]
